FAERS Safety Report 5709085-3 (Version None)
Quarter: 2008Q2

REPORT INFORMATION
  Report Type: 
  Country: None (occurrence: None)
  Receive Date: 20080418
  Receipt Date: 20080409
  Transmission Date: 20081010
  Serious: Yes (Hospitalization, Other)
  Sender: FDA-Public Use
  Company Number: JP-JNJFOC-20080303971

PATIENT
  Sex: Female

DRUGS (12)
  1. RISPERDAL [Suspect]
     Indication: SCHIZOPHRENIA
     Route: 048
  2. HALOMONTH [Suspect]
     Indication: SCHIZOPHRENIA
     Route: 030
  3. SULTOPRIDE [Concomitant]
     Indication: INSOMNIA
     Route: 048
  4. SULTOPRIDE [Concomitant]
     Indication: SCHIZOPHRENIA
     Route: 048
  5. HALOPERIDOL [Concomitant]
     Indication: SCHIZOPHRENIA
     Route: 048
  6. TRIHEXYPHENIDYL HCL [Concomitant]
     Indication: PARKINSONISM
     Route: 048
  7. PEROSPIRONE [Concomitant]
     Indication: SCHIZOPHRENIA
     Route: 048
  8. CHLORPROMAZINE HCL [Concomitant]
     Route: 048
  9. CHLORPROMAZINE HCL [Concomitant]
     Indication: SCHIZOPHRENIA
     Route: 048
  10. ZOTEPINE [Concomitant]
     Indication: SCHIZOPHRENIA
     Route: 048
  11. LEVOMEPROMAZINE [Concomitant]
     Indication: SCHIZOPHRENIA
     Route: 048
  12. VEGETAMIN-A [Concomitant]
     Indication: INSOMNIA
     Route: 048

REACTIONS (5)
  - CARDIO-RESPIRATORY ARREST [None]
  - ELECTROCARDIOGRAM QT PROLONGED [None]
  - HYPOXIC ENCEPHALOPATHY [None]
  - VENTRICULAR FIBRILLATION [None]
  - VENTRICULAR TACHYCARDIA [None]
